FAERS Safety Report 6670918-8 (Version None)
Quarter: 2010Q2

REPORT INFORMATION
  Report Type: 
  Country: None (occurrence: None)
  Receive Date: 20100407
  Receipt Date: 20100330
  Transmission Date: 20101027
  Serious: Yes (Other)
  Sender: FDA-Public Use
  Company Number: JP-BAYER-201010636BYL

PATIENT
  Age: 58 Year
  Sex: Male
  Weight: 70 kg

DRUGS (9)
  1. NEXAVAR [Suspect]
     Indication: HEPATIC NEOPLASM MALIGNANT
     Dosage: TOTAL DAILY DOSE: 800 MG  UNIT DOSE: 200 MG
     Route: 048
     Dates: start: 20100121, end: 20100125
  2. NEXAVAR [Suspect]
     Dosage: TOTAL DAILY DOSE: 400 MG  UNIT DOSE: 200 MG
     Route: 048
     Dates: start: 20100212
  3. MONILAC [Concomitant]
     Route: 048
     Dates: start: 20071201
  4. URSO 250 [Concomitant]
     Route: 048
     Dates: start: 20071201
  5. LASIX [Concomitant]
     Route: 048
     Dates: start: 20071201
  6. FAMOTIDINE [Concomitant]
     Route: 048
     Dates: start: 20071201
  7. BRANUTE [Concomitant]
     Route: 048
     Dates: start: 20071201
  8. MYSLEE [Concomitant]
     Indication: INSOMNIA
     Route: 048
     Dates: start: 20080221
  9. PRIMOBOLAN [Concomitant]
     Indication: PANCYTOPENIA
     Route: 048
     Dates: start: 20091001

REACTIONS (2)
  - HEPATIC ENCEPHALOPATHY [None]
  - PALMAR-PLANTAR ERYTHRODYSAESTHESIA SYNDROME [None]
